FAERS Safety Report 23135716 (Version 2)
Quarter: 2023Q4

REPORT INFORMATION
  Report Type: Spontaneous
  Country: US (occurrence: US)
  Receive Date: 20231101
  Receipt Date: 20231218
  Transmission Date: 20240110
  Serious: Yes (Other)
  Sender: FDA-Public Use
  Company Number: US-009507513-2310USA011240

PATIENT
  Age: 80 Year
  Sex: Male
  Weight: 91.156 kg

DRUGS (20)
  1. VERQUVO [Suspect]
     Active Substance: VERICIGUAT
     Indication: Left ventricular failure
     Dosage: UNK
     Route: 048
     Dates: start: 20230925
  2. VERQUVO [Suspect]
     Active Substance: VERICIGUAT
     Dosage: 5 MILLIGRAM, QD
     Route: 048
     Dates: end: 20231020
  3. CARVEDILOL [Concomitant]
     Active Substance: CARVEDILOL
  4. TYLENOL [Concomitant]
     Active Substance: ACETAMINOPHEN
     Indication: Pain
     Dosage: TAKE 1-2 TABLETS (500-1000 MG TOTAL) EVERY 6H AS NEEDED
     Route: 048
  5. VENTOLIN HFA [Concomitant]
     Active Substance: ALBUTEROL SULFATE
     Dosage: INHALE 1 PUFF INTO THE LUNGS EVERY 4H AS NEEDED
  6. ASPIRIN [Concomitant]
     Active Substance: ASPIRIN
     Dosage: 81 MILLIGRAM IN THE MORNING
     Route: 048
  7. PLAVIX [Concomitant]
     Active Substance: CLOPIDOGREL BISULFATE
     Dosage: 75 MILLIGRAM, QD
     Route: 048
  8. FARXIGA [Concomitant]
     Active Substance: DAPAGLIFLOZIN PROPANEDIOL
     Dosage: 10 MILLIGRAM IN THE MORNING
     Route: 048
  9. FLONASE [Concomitant]
     Active Substance: FLUTICASONE PROPIONATE
     Dosage: 1 SPRAY BY NASAL ROUTE IN THE MORNING
     Route: 045
  10. BREO ELLIPTA [Concomitant]
     Active Substance: FLUTICASONE FUROATE\VILANTEROL TRIFENATATE
     Dosage: 1 PUFF INTO THE LUNGS IN THE MORNING
  11. LASIX [Concomitant]
     Active Substance: FUROSEMIDE
     Dosage: 1 TABLET EVERY MORNING
  12. LEVEMIR [Concomitant]
     Active Substance: INSULIN DETEMIR
     Dosage: 30 UNITS INTO THE SKIN NIGHTLY
  13. ADMELOG [Concomitant]
     Active Substance: INSULIN LISPRO
     Dosage: 6 UNITS INTO THE SKIN 3 TIMES DAILY BEFORE MEALS
  14. TOPROL XL [Concomitant]
     Active Substance: METOPROLOL SUCCINATE
     Dosage: 1 TABLET IN THE MORNING
  15. MEXITIL [Concomitant]
     Active Substance: MEXILETINE HYDROCHLORIDE
     Dosage: 1 CAPSULE EVENRY MORNING, EVERY EVENING AND AT BEDTIME
  16. OMEPRAZOLE [Concomitant]
     Active Substance: OMEPRAZOLE
     Dosage: 1 TABLET IN THE MORNING AND 1 TABLET BEFORE BEDTIME
     Route: 048
  17. CRESTOR [Concomitant]
     Active Substance: ROSUVASTATIN CALCIUM
     Dosage: 1 TABLET DAILY
  18. ALDACTONE [Concomitant]
     Active Substance: SPIRONOLACTONE
     Dosage: 0.5 TABLET (12.5 MILLIGRAM) IN THE MORNING
  19. SPIRIVA RESPIMAT [Concomitant]
     Active Substance: TIOTROPIUM BROMIDE
     Dosage: 2 PUFFS INTO THE LUNGS 2 TIMES A DAY
  20. VITAMIN B COMPLEX [Concomitant]
     Active Substance: CYANOCOBALAMIN\DEXPANTHENOL\NIACINAMIDE\PYRIDOXINE HYDROCHLORIDE\RIBOFLAVIN 5^-PHOSPHATE SODIUM\THIA
     Dosage: 1 TABLET IN THE MORNING
     Route: 048

REACTIONS (4)
  - Syncope [Recovering/Resolving]
  - Drug hypersensitivity [Unknown]
  - Dizziness [Recovering/Resolving]
  - Hypotension [Recovering/Resolving]

NARRATIVE: CASE EVENT DATE: 20230101
